FAERS Safety Report 14411718 (Version 1)
Quarter: 2018Q1

REPORT INFORMATION
  Report Type: Spontaneous
  Country: US (occurrence: US)
  Receive Date: 20180119
  Receipt Date: 20180119
  Transmission Date: 20180509
  Serious: No
  Sender: FDA-Public Use
  Company Number: US-PERRIGO-17US027689

PATIENT
  Age: 4 Month
  Sex: Female
  Weight: 4.99 kg

DRUGS (2)
  1. VACCINES [Concomitant]
     Active Substance: UNSPECIFIED INGREDIENT
     Indication: IMMUNISATION
     Dosage: UNK
     Route: 030
     Dates: start: 20171019, end: 20171019
  2. IBUPROFEN. [Suspect]
     Active Substance: IBUPROFEN
     Indication: PYREXIA
     Dosage: 40 MG, QD
     Route: 048
     Dates: start: 20171019, end: 20171020

REACTIONS (4)
  - Dyspnoea [Recovered/Resolved]
  - Drug administered to patient of inappropriate age [Recovered/Resolved]
  - Vomiting [Recovered/Resolved]
  - Oxygen saturation decreased [Recovered/Resolved]

NARRATIVE: CASE EVENT DATE: 20171019
